FAERS Safety Report 25657545 (Version 1)
Quarter: 2025Q3

REPORT INFORMATION
  Report Type: Report from Study
  Country: US (occurrence: US)
  Receive Date: 20250808
  Receipt Date: 20250808
  Transmission Date: 20251021
  Serious: Yes (Other)
  Sender: SUNOVION
  Company Number: US-SUMITOMO PHARMA SWITZERLAND GMBH-2025SPA001393

PATIENT
  Age: 84 Year
  Sex: Male

DRUGS (11)
  1. ORGOVYX [Suspect]
     Active Substance: RELUGOLIX
     Indication: Prostate cancer
     Dosage: 120 MG, QD
     Route: 048
     Dates: start: 202501
  2. ELIQUIS [Concomitant]
     Active Substance: APIXABAN
  3. CLOPIDOGREL [Concomitant]
     Active Substance: CLOPIDOGREL BISULFATE
  4. FENOFIBRATE [Concomitant]
     Active Substance: FENOFIBRATE
  5. ASPIRIN [Concomitant]
     Active Substance: ASPIRIN
  6. LEVOTHYROXINE [Concomitant]
     Active Substance: LEVOTHYROXINE
  7. CARVEDILOL [Concomitant]
     Active Substance: CARVEDILOL
  8. LISINOPRIL [Concomitant]
     Active Substance: LISINOPRIL
  9. VITAMIN D3 [Concomitant]
     Active Substance: CHOLECALCIFEROL
  10. PANTOPRAZOLE [Concomitant]
     Active Substance: PANTOPRAZOLE
  11. CEPHALEXIN [Concomitant]
     Active Substance: CEPHALEXIN

REACTIONS (10)
  - Blindness [Unknown]
  - Transient ischaemic attack [Unknown]
  - Heart valve replacement [Unknown]
  - Flatulence [Unknown]
  - Eye infection [Unknown]
  - Limb injury [Unknown]
  - Hot flush [Unknown]
  - Diarrhoea [Unknown]
  - Incorrect dose administered [Unknown]
  - Product dose omission issue [Recovered/Resolved]

NARRATIVE: CASE EVENT DATE: 20240303
